FAERS Safety Report 10034045 (Version 1)
Quarter: 2014Q1

REPORT INFORMATION
  Report Type: Spontaneous
  Country: GB (occurrence: None)
  Receive Date: 20140324
  Receipt Date: 20140324
  Transmission Date: 20141002
  Serious: Yes (Disabling)
  Sender: FDA-Public Use
  Company Number: None

PATIENT
  Age: 57 Year
  Sex: Male
  Weight: 80 kg

DRUGS (1)
  1. CIPROFLOXACIN [Suspect]
     Indication: PROSTATITIS
     Route: 048

REACTIONS (8)
  - Convulsion [None]
  - Paraesthesia [None]
  - Burning sensation [None]
  - Hypoaesthesia [None]
  - Chills [None]
  - Insomnia [None]
  - Tremor [None]
  - Feeling abnormal [None]
